FAERS Safety Report 8443218-3 (Version None)
Quarter: 2012Q2

REPORT INFORMATION
  Report Type: 
  Country: None (occurrence: None)
  Receive Date: 20120617
  Receipt Date: 20120608
  Transmission Date: 20120825
  Serious: Yes (Other)
  Sender: FDA-Public Use
  Company Number: US-RB-041282-12

PATIENT
  Age: 24 Year
  Sex: Male

DRUGS (1)
  1. MUCINEX DM [Suspect]
     Indication: PRODUCT USED FOR UNKNOWN INDICATION
     Dosage: TOOK 2 TABLETS ON 6/JUN-2012 AT 7-8PM, 2 TABLETS AT MIDNIGHT AND 2 TABLETS AT 5AM ON 07/JUN/2012
     Route: 048
     Dates: start: 20120606

REACTIONS (4)
  - HALLUCINATION [None]
  - DISTURBANCE IN SEXUAL AROUSAL [None]
  - OVERDOSE [None]
  - ANORGASMIA [None]
